FAERS Safety Report 19010888 (Version 1)
Quarter: 2021Q1

REPORT INFORMATION
  Report Type: Other
  Country: CA (occurrence: CA)
  Receive Date: 20210316
  Receipt Date: 20210316
  Transmission Date: 20210420
  Serious: Yes (Other)
  Sender: FDA-Public Use
  Company Number: CA-APOTEX-2021AP005994

PATIENT
  Age: 41 Year
  Sex: Female

DRUGS (1)
  1. SALBUTAMOL [Suspect]
     Active Substance: ALBUTEROL
     Indication: PRODUCT USED FOR UNKNOWN INDICATION
     Dosage: UNK
     Route: 065

REACTIONS (6)
  - Asthma [Unknown]
  - Restrictive pulmonary disease [Unknown]
  - Therapeutic product effect incomplete [Unknown]
  - Blood immunoglobulin E abnormal [Unknown]
  - Obstructive airways disorder [Unknown]
  - Bronchial hyperreactivity [Unknown]
